FAERS Safety Report 5096147-X (Version None)
Quarter: 2006Q3

REPORT INFORMATION
  Report Type: 
  Country: None (occurrence: None)
  Receive Date: 20060905
  Receipt Date: 20060321
  Transmission Date: 20061208
  Serious: Yes (Disabling, Other)
  Sender: FDA-Public Use
  Company Number: US-BAYER-200611890BWH

PATIENT
  Age: 65 Year
  Sex: Male
  Weight: 104 kg

DRUGS (5)
  1. NEXAVAR [Suspect]
     Indication: METASTATIC RENAL CELL CARCINOMA
     Dosage: TOTAL DAILY DOSE: 800 MG  UNIT DOSE: 200 MG
     Route: 048
     Dates: start: 20060201
  2. NEXAVAR [Suspect]
     Dosage: TOTAL DAILY DOSE: 400 MG  UNIT DOSE: 200 MG
     Route: 048
     Dates: start: 20060101, end: 20060613
  3. NEXAVAR [Suspect]
     Dosage: TOTAL DAILY DOSE: 800 MG  UNIT DOSE: 200 MG
     Route: 048
     Dates: start: 20060616, end: 20060701
  4. DITROPAN [Concomitant]
     Dosage: TOTAL DAILY DOSE: 15 MG
     Route: 048
  5. PREVACID [Concomitant]
     Dosage: TOTAL DAILY DOSE: 60 MG
     Route: 048

REACTIONS (12)
  - AMNESIA [None]
  - BLOOD PRESSURE INCREASED [None]
  - COUGH [None]
  - DIARRHOEA [None]
  - DRY SKIN [None]
  - DYSPHONIA [None]
  - HAEMOPTYSIS [None]
  - HYPERTENSION [None]
  - MOBILITY DECREASED [None]
  - PAIN [None]
  - PERICARDIAL EFFUSION [None]
  - WEIGHT DECREASED [None]
